FAERS Safety Report 4498493-7 (Version None)
Quarter: 2004Q4

REPORT INFORMATION
  Report Type: 
  Country: None (occurrence: None)
  Receive Date: 20041105
  Receipt Date: 20041022
  Transmission Date: 20050328
  Serious: Yes (Life-Threatening)
  Sender: FDA-Public Use
  Company Number: 04H-163-0274289-00

PATIENT
  Age: 68 Year
  Sex: Male
  Weight: 95.4 kg

DRUGS (8)
  1. MIDAZOLAM HYDROCHLORIDE [Suspect]
     Indication: SEDATION
     Dosage: 4 MG, INTRAVENOUS
     Route: 042
     Dates: start: 20040819, end: 20040819
  2. IOHEXOL [Suspect]
     Indication: SCAN WITH CONTRAST
     Dosage: SINGLE DOSE, INTRA-ARTERIAL
     Route: 013
     Dates: start: 20040819, end: 20040819
  3. MIDAZOLAM HYDROCHLORIDE [Concomitant]
  4. ATENOLOL [Concomitant]
  5. HYDROCHLOROTHIAZIDE [Concomitant]
  6. LISINOPRIL [Concomitant]
  7. TAMSULOSIN HYDROCHLORIDE [Concomitant]
  8. POTASSIUM [Concomitant]

REACTIONS (9)
  - ANAPHYLACTIC REACTION [None]
  - APNOEA [None]
  - CORONARY ARTERY ATHEROSCLEROSIS [None]
  - HEPATIC CONGESTION [None]
  - HEPATOSPLENOMEGALY [None]
  - HYPOTENSION [None]
  - PULMONARY CONGESTION [None]
  - PULMONARY OEDEMA [None]
  - SPLEEN CONGESTION [None]
